FAERS Safety Report 7946874-9 (Version None)
Quarter: 2011Q4

REPORT INFORMATION
  Report Type: 
  Country: None (occurrence: None)
  Receive Date: 20111129
  Receipt Date: 20111121
  Transmission Date: 20120403
  Serious: Yes (Hospitalization)
  Sender: FDA-Public Use
  Company Number: PHHY2011AT102140

PATIENT
  Age: 15 Year
  Sex: Male
  Weight: 35 kg

DRUGS (21)
  1. GLEEVEC [Suspect]
     Dosage: 400 MG, DAILY
     Dates: start: 20110820, end: 20111022
  2. PURINETHOL [Concomitant]
     Indication: CHROMOSOME ANALYSIS ABNORMAL
     Dates: start: 20110806, end: 20110816
  3. CYCLOPHOSPHAMIDE [Concomitant]
     Indication: CHROMOSOME ANALYSIS ABNORMAL
     Dates: start: 20110806
  4. PANTOPRAZOLE SODIUM [Concomitant]
     Dates: start: 20111011
  5. GLEEVEC [Suspect]
     Indication: ACUTE LYMPHOCYTIC LEUKAEMIA
     Dosage: 400 MG, QD
     Route: 048
     Dates: start: 20110101
  6. ONCASPAR [Concomitant]
  7. METHOTREXATE [Concomitant]
     Indication: CHROMOSOME ANALYSIS ABNORMAL
     Dates: start: 20110806
  8. NEUROBION [Concomitant]
     Dates: start: 20111016
  9. VERTIROSAN [Concomitant]
  10. PEGASPARGASE [Concomitant]
     Indication: CHROMOSOME ANALYSIS ABNORMAL
     Dates: start: 20110806, end: 20110831
  11. HUMATIN [Concomitant]
     Dates: start: 20110806
  12. PREDNISOLONE [Concomitant]
     Indication: CHROMOSOME ANALYSIS ABNORMAL
     Dates: start: 20110806
  13. AMPHOTERICIN B [Concomitant]
     Dates: start: 20110806
  14. ONCOVIN [Concomitant]
     Indication: CHROMOSOME ANALYSIS ABNORMAL
     Dates: start: 20110806
  15. ZOFRAN [Concomitant]
     Dates: start: 20111005
  16. XEFO [Concomitant]
  17. DAUNORUBICIN HCL [Concomitant]
     Indication: CHROMOSOME ANALYSIS ABNORMAL
     Dates: start: 20110806
  18. MERCAPTOPURINE [Concomitant]
     Dates: start: 20111016
  19. CYTARABINE [Concomitant]
     Indication: CHROMOSOME ANALYSIS ABNORMAL
  20. THIAMINE HYDROCHLORIDE [Concomitant]
     Dates: start: 20111016
  21. NABILONE [Concomitant]

REACTIONS (2)
  - SUBDURAL HAEMATOMA [None]
  - HAEMORRHAGE [None]
